FAERS Safety Report 24317588 (Version 1)
Quarter: 2024Q3

REPORT INFORMATION
  Report Type: Spontaneous
  Country: GB (occurrence: GB)
  Receive Date: 20240913
  Receipt Date: 20240913
  Transmission Date: 20241017
  Serious: Yes (Death, Other)
  Sender: TEVA
  Company Number: GB-PHARMVIT-4556-3352-ER24-RN1169

PATIENT
  Age: 53 Year
  Sex: Male

DRUGS (1)
  1. PREDNISOLONE [Suspect]
     Active Substance: PREDNISOLONE
     Route: 065

REACTIONS (3)
  - Cardiac arrest [Fatal]
  - Pneumococcal sepsis [Not Recovered/Not Resolved]
  - Immunosuppression [Not Recovered/Not Resolved]
